FAERS Safety Report 20391331 (Version 1)
Quarter: 2022Q1

REPORT INFORMATION
  Report Type: Spontaneous
  Country: US (occurrence: None)
  Receive Date: 20220127
  Receipt Date: 20220127
  Transmission Date: 20220424
  Serious: No
  Sender: FDA-Public Use
  Company Number: None

PATIENT
  Age: 72 Year
  Sex: Female

DRUGS (5)
  1. CIMZIA [Suspect]
     Active Substance: CERTOLIZUMAB PEGOL
     Indication: Rheumatoid arthritis
     Dosage: OTHER FREQUENCY : EVERY 4 WEEKS;?
     Route: 058
     Dates: start: 20171108
  2. TYLENOL [Concomitant]
     Active Substance: ACETAMINOPHEN
  3. FLUTICASONE [Concomitant]
     Active Substance: FLUTICASONE
  4. BENZONATATE [Concomitant]
     Active Substance: BENZONATATE
  5. MONTELUKAST [Concomitant]
     Active Substance: MONTELUKAST SODIUM

REACTIONS (3)
  - Illness [None]
  - Pain [None]
  - Therapy interrupted [None]
